FAERS Safety Report 9294220 (Version 3)
Quarter: 2015Q2

REPORT INFORMATION
  Report Type: Spontaneous
  Country: US (occurrence: US)
  Receive Date: 20130516
  Receipt Date: 20150401
  Transmission Date: 20150821
  Serious: Yes (Other)
  Sender: FDA-Public Use
  Company Number: US-009507513-1305USA008625

PATIENT
  Sex: Male

DRUGS (1)
  1. PROPECIA [Suspect]
     Active Substance: FINASTERIDE
     Indication: ALOPECIA
     Dosage: UNK
     Route: 048
     Dates: start: 2004, end: 2008

REACTIONS (39)
  - Sexual dysfunction [Not Recovered/Not Resolved]
  - Nervous system disorder [Unknown]
  - Coronary artery disease [Unknown]
  - Gout [Unknown]
  - Back pain [Not Recovered/Not Resolved]
  - Hyperlipidaemia [Unknown]
  - Hypercholesterolaemia [Unknown]
  - Malaria [Unknown]
  - Diverticulum [Unknown]
  - Androgen deficiency [Unknown]
  - Staphylococcal infection [Unknown]
  - Carpal tunnel syndrome [Not Recovered/Not Resolved]
  - Abdominal hernia [Unknown]
  - Hyperthyroidism [Unknown]
  - Skin disorder [Unknown]
  - Gastrooesophageal reflux disease [Unknown]
  - Fibromyalgia [Unknown]
  - Sinusitis [Unknown]
  - Depression [Unknown]
  - Asthma [Unknown]
  - Restless legs syndrome [Unknown]
  - Headache [Not Recovered/Not Resolved]
  - Pernicious anaemia [Not Recovered/Not Resolved]
  - Hypothyroidism [Unknown]
  - Osteoarthritis [Unknown]
  - Obesity [Unknown]
  - Diabetic neuropathy [Not Recovered/Not Resolved]
  - Erectile dysfunction [Not Recovered/Not Resolved]
  - Anxiety [Unknown]
  - Knee operation [Unknown]
  - Abnormal weight gain [Unknown]
  - Hypersensitivity [Unknown]
  - Thermal burn [Unknown]
  - Intervertebral disc degeneration [Not Recovered/Not Resolved]
  - Hypertension [Unknown]
  - Acrochordon [Not Recovered/Not Resolved]
  - Sleep apnoea syndrome [Unknown]
  - Rotator cuff repair [Unknown]
  - Tonsillectomy [Unknown]

NARRATIVE: CASE EVENT DATE: 2004
